FAERS Safety Report 5510270-4 (Version None)
Quarter: 2007Q4

REPORT INFORMATION
  Report Type: 
  Country: None (occurrence: None)
  Receive Date: 20071030
  Receipt Date: 20070309
  Transmission Date: 20080405
  Serious: Yes (Other)
  Sender: FDA-Public Use
  Company Number: HQWYE382112MAR07

PATIENT
  Age: 68 Year
  Sex: Female
  Weight: 52.21 kg

DRUGS (5)
  1. PREMARIN [Suspect]
     Indication: HORMONE REPLACEMENT THERAPY
     Dates: start: 19630101, end: 19980101
  2. PREMARIN [Suspect]
     Indication: HYSTERECTOMY
     Dates: start: 19630101, end: 19980101
  3. COUMADIN [Concomitant]
  4. COREG [Concomitant]
  5. METHOTREXATE [Concomitant]

REACTIONS (1)
  - THROMBOSIS [None]
